FAERS Safety Report 6390929-X (Version None)
Quarter: 2009Q4

REPORT INFORMATION
  Report Type: 
  Country: None (occurrence: None)
  Receive Date: 20091003
  Receipt Date: 20090918
  Transmission Date: 20100525
  Serious: Yes (Hospitalization)
  Sender: FDA-Public Use
  Company Number: 014762

PATIENT
  Sex: Male

DRUGS (1)
  1. PRIALT [Suspect]
     Indication: DRUG USE FOR UNKNOWN INDICATION
     Dosage: 0.05 UG, ONCE/HOUR, INTRATHECAL
     Route: 037
     Dates: start: 20090601

REACTIONS (19)
  - ABNORMAL BEHAVIOUR [None]
  - ALTERED STATE OF CONSCIOUSNESS [None]
  - ASTHENIA [None]
  - BURNING SENSATION [None]
  - COLD SWEAT [None]
  - COORDINATION ABNORMAL [None]
  - DISORIENTATION [None]
  - DYSPHAGIA [None]
  - ENERGY INCREASED [None]
  - FEELING COLD [None]
  - HALLUCINATION [None]
  - HALLUCINATION, VISUAL [None]
  - HEART RATE DECREASED [None]
  - HYPERHIDROSIS [None]
  - MOVEMENT DISORDER [None]
  - PSYCHOTIC DISORDER [None]
  - SPEECH DISORDER [None]
  - VERTIGO [None]
  - VISUAL IMPAIRMENT [None]
